FAERS Safety Report 10413621 (Version 1)
Quarter: 2014Q2

REPORT INFORMATION
  Report Type: Spontaneous
  Country: US (occurrence: None)
  Receive Date: 20140604
  Receipt Date: 20140604
  Transmission Date: 20141212
  Serious: Yes (Hospitalization)
  Sender: FDA-Public Use
  Company Number: 20120820CINRY3279

PATIENT
  Age: 33 Year
  Sex: Female

DRUGS (1)
  1. CINRYZE [Suspect]
     Indication: HEREDITARY ANGIOEDEMA
     Dosage: UNKNOWN (UNIT), INTRAVENOUS
     Route: 042

REACTIONS (2)
  - Hereditary angioedema [None]
  - Drug dose omission [None]
